FAERS Safety Report 5258233-0 (Version None)
Quarter: 2007Q1

REPORT INFORMATION
  Report Type: 
  Country: None (occurrence: None)
  Receive Date: 20070302
  Receipt Date: 20070213
  Transmission Date: 20070707
  Serious: Yes (Other)
  Sender: FDA-Public Use
  Company Number: 148407ISR

PATIENT
  Age: 32 Year
  Sex: Female

DRUGS (3)
  1. CARBOPLATIN [Suspect]
     Indication: OVARIAN CANCER
     Dosage: 450 MG INTRAVENOUS
     Route: 042
     Dates: start: 20060725, end: 20060728
  2. PACLITAXEL [Suspect]
     Indication: OVARIAN CANCER
     Dosage: 300 MG INTRAVENOUS
     Route: 042
     Dates: start: 20060728, end: 20060728
  3. ONDANSETRON [Concomitant]

REACTIONS (5)
  - ALOPECIA [None]
  - PRURITUS [None]
  - PYREXIA [None]
  - TOXIC SKIN ERUPTION [None]
  - VASCULITIS [None]
